FAERS Safety Report 18559455 (Version 5)
Quarter: 2022Q3

REPORT INFORMATION
  Report Type: Spontaneous
  Country: US (occurrence: US)
  Receive Date: 20201130
  Receipt Date: 20220913
  Transmission Date: 20221027
  Serious: No
  Sender: FDA-Public Use
  Company Number: US-PFIZER INC-2020466454

PATIENT
  Age: 57 Year
  Sex: Female
  Weight: 65.77 kg

DRUGS (3)
  1. TOVIAZ [Suspect]
     Active Substance: FESOTERODINE FUMARATE
     Indication: Bladder disorder
     Dosage: UNK (STRENGTH;4MG)
     Dates: start: 2016
  2. TOVIAZ [Suspect]
     Active Substance: FESOTERODINE FUMARATE
     Dosage: 8 MG, 1X/DAY (STRENGTH:8MG)
     Route: 048
  3. PROGESTERONE [Concomitant]
     Active Substance: PROGESTERONE
     Indication: Hot flush
     Dosage: 1 DF, 1X/DAY (1 PILL EVERY NIGHT)
     Dates: start: 201904

REACTIONS (3)
  - Dyspnoea [Recovered/Resolved]
  - Pain in extremity [Unknown]
  - Paraesthesia [Unknown]
